FAERS Safety Report 7392218-3 (Version None)
Quarter: 2011Q2

REPORT INFORMATION
  Report Type: 
  Country: None (occurrence: None)
  Receive Date: 20110404
  Receipt Date: 20110328
  Transmission Date: 20111010
  Serious: Yes (Hospitalization)
  Sender: FDA-Public Use
  Company Number: Z0006726A

PATIENT
  Sex: Male
  Weight: 100 kg

DRUGS (2)
  1. PAZOPANIB [Suspect]
     Indication: RENAL CELL CARCINOMA
     Dosage: 800MG PER DAY
     Route: 048
     Dates: start: 20101118
  2. CLEXANE [Concomitant]
     Indication: PROPHYLAXIS
     Dosage: 40MG PER DAY
     Route: 058
     Dates: start: 20101126, end: 20101129

REACTIONS (1)
  - BACK PAIN [None]
